FAERS Safety Report 6101691-X (Version None)
Quarter: 2009Q1

REPORT INFORMATION
  Report Type: 
  Country: None (occurrence: None)
  Receive Date: 20090303
  Receipt Date: 20090303
  Transmission Date: 20090719
  Serious: No
  Sender: FDA-Public Use
  Company Number: None

PATIENT
  Age: 5 Year
  Sex: Female
  Weight: 28 kg

DRUGS (1)
  1. CLEOCIN [Suspect]
     Indication: ABSCESS
     Dates: start: 20090220, end: 20090228

REACTIONS (1)
  - ERYTHEMA MULTIFORME [None]
